FAERS Safety Report 8616180-8 (Version None)
Quarter: 2012Q3

REPORT INFORMATION
  Report Type: 
  Country: None (occurrence: None)
  Receive Date: 20120823
  Receipt Date: 20120815
  Transmission Date: 20120928
  Serious: Yes (Other)
  Sender: FDA-Public Use
  Company Number: US-009507513-1208USA000248

PATIENT

DRUGS (6)
  1. JANUMET XR [Suspect]
     Dosage: UNK
     Route: 048
     Dates: start: 20120720
  2. JANUMET XR [Suspect]
     Dosage: UNK
  3. LANTUS [Concomitant]
     Dosage: 15 IU, HS
     Dates: end: 20120101
  4. LANTUS [Concomitant]
     Dosage: 30 IU, HS
  5. JANUMET XR [Suspect]
     Indication: TYPE 2 DIABETES MELLITUS
     Dosage: 50/100 MG , BID
     Route: 048
     Dates: start: 20120621, end: 20120601
  6. METFORMIN HCL [Suspect]
     Indication: DIABETES MELLITUS
     Dosage: 1000 MG, TID

REACTIONS (5)
  - BLOOD GLUCOSE INCREASED [None]
  - POLYURIA [None]
  - ABDOMINAL DISCOMFORT [None]
  - FATIGUE [None]
  - DRUG INEFFECTIVE [None]
